FAERS Safety Report 12580941 (Version 1)
Quarter: 2016Q3

REPORT INFORMATION
  Report Type: Spontaneous
  Country: JP (occurrence: JP)
  Receive Date: 20160721
  Receipt Date: 20160721
  Transmission Date: 20161109
  Serious: Yes (Other)
  Sender: FDA-Public Use
  Company Number: JP-HQ SPECIALTY-JP-2016INT000583

PATIENT
  Age: 42 Year
  Sex: Male

DRUGS (2)
  1. CISPLATIN. [Suspect]
     Active Substance: CISPLATIN
     Indication: NASAL SINUS CANCER
     Dosage: 5 MG/M2, DAILY (TOTAL 252 MG)
     Route: 065
  2. DOCETAXEL. [Suspect]
     Active Substance: DOCETAXEL
     Indication: NASAL SINUS CANCER
     Dosage: 15 MG/M2, WEEKLY (TOTAL 151 MG)
     Route: 065

REACTIONS (3)
  - Neutropenia [Recovered/Resolved]
  - Dermatitis [Recovered/Resolved]
  - Stomatitis [Recovered/Resolved]
